FAERS Safety Report 7474918-X (Version None)
Quarter: 2011Q2

REPORT INFORMATION
  Report Type: 
  Country: None (occurrence: None)
  Receive Date: 20110512
  Receipt Date: 20110428
  Transmission Date: 20111010
  Serious: Yes (Other)
  Sender: FDA-Public Use
  Company Number: US-BAYER-200934373NA

PATIENT
  Sex: Female
  Weight: 59.41 kg

DRUGS (8)
  1. FENTANYL [Concomitant]
     Dosage: UNK
     Dates: start: 19970414
  2. VERSED [Concomitant]
     Dosage: UNK
     Dates: start: 19970414
  3. PROTAMINE SULFATE [Concomitant]
     Dosage: UNK
     Dates: start: 19970414
  4. TRASYLOL [Suspect]
     Indication: MITRAL COMMISSUROTOMY
     Dosage: UNK
     Route: 042
     Dates: start: 19970414
  5. ATENOLOL [Concomitant]
     Indication: TACHYCARDIA
     Dosage: 50 MG, QD
     Dates: start: 20061101
  6. EPINEPHRINE [Concomitant]
     Dosage: UNK
     Dates: start: 19970414
  7. PHENYLEPHRINE HCL [Concomitant]
     Dosage: UNK
     Dates: start: 19970414
  8. PAVULON [Concomitant]
     Dosage: UNK
     Dates: start: 19970414

REACTIONS (12)
  - RENAL FAILURE [None]
  - ANHEDONIA [None]
  - PAIN [None]
  - MULTI-ORGAN FAILURE [None]
  - RENAL INJURY [None]
  - ANXIETY [None]
  - EMOTIONAL DISTRESS [None]
  - DEPRESSION [None]
  - NERVOUSNESS [None]
  - INJURY [None]
  - FEAR [None]
  - UNEVALUABLE EVENT [None]
